FAERS Safety Report 9981338 (Version 4)
Quarter: 2014Q3

REPORT INFORMATION
  Report Type: Report from Study
  Country: US (occurrence: US)
  Receive Date: 20140307
  Receipt Date: 20140722
  Transmission Date: 20150326
  Serious: Yes (Other)
  Sender: FDA-Public Use
  Company Number: US-ALEXION PHARMACEUTICALS INC.-A201400670

PATIENT

DRUGS (2)
  1. SOLIRIS [Suspect]
     Active Substance: ECULIZUMAB
     Indication: OFF LABEL USE
  2. SOLIRIS [Suspect]
     Active Substance: ECULIZUMAB
     Indication: THROMBOTIC THROMBOCYTOPENIC PURPURA
     Dosage: 1200 MG, QW
     Route: 042
     Dates: start: 20140124

REACTIONS (5)
  - Inappropriate schedule of drug administration [Unknown]
  - Off label use [Not Recovered/Not Resolved]
  - Chest pain [Recovered/Resolved]
  - Pericarditis [Recovered/Resolved]
  - Cardiomegaly [Unknown]

NARRATIVE: CASE EVENT DATE: 20140124
